FAERS Safety Report 16281980 (Version 2)
Quarter: 2019Q3

REPORT INFORMATION
  Report Type: Report from Study
  Country: None (occurrence: US)
  Receive Date: 20190507
  Receipt Date: 20190726
  Transmission Date: 20191004
  Serious: Yes (Hospitalization)
  Sender: FDA-Public Use
  Company Number: US-BIOVITRUM-2019US0994

PATIENT
  Sex: Female

DRUGS (15)
  1. ORFADIN [Suspect]
     Active Substance: NITISINONE
     Indication: TYROSINAEMIA
     Route: 048
     Dates: start: 20140520
  2. MICARDIS [Concomitant]
     Active Substance: TELMISARTAN
  3. CITALOPRAM [Concomitant]
     Active Substance: CITALOPRAM HYDROBROMIDE
  4. VYVANSE [Concomitant]
     Active Substance: LISDEXAMFETAMINE DIMESYLATE
  5. METOPROLOL. [Concomitant]
     Active Substance: METOPROLOL
  6. LORAZEPAM. [Concomitant]
     Active Substance: LORAZEPAM
  7. TYLACTIN RTD 15 [Concomitant]
  8. VENLAFAXINE [Concomitant]
     Active Substance: VENLAFAXINE HYDROCHLORIDE
  9. PREDNISONE. [Concomitant]
     Active Substance: PREDNISONE
  10. ROSUVASTATIN. [Concomitant]
     Active Substance: ROSUVASTATIN
  11. BUSPIRONE [Concomitant]
     Active Substance: BUSPIRONE HYDROCHLORIDE
  12. ENVARSUS XR [Concomitant]
     Active Substance: TACROLIMUS
  13. NEXPLANON [Concomitant]
     Active Substance: ETONOGESTREL
  14. TACROLIMUS. [Concomitant]
     Active Substance: TACROLIMUS
  15. ORFADIN [Suspect]
     Active Substance: NITISINONE
     Route: 048
     Dates: start: 20140520

REACTIONS (1)
  - Heart transplant rejection [Recovering/Resolving]
